FAERS Safety Report 8762806 (Version 1)
Quarter: 2012Q4

REPORT INFORMATION
  Report Type: 
  Country: US (occurrence: US)
  Receive Date: 20120830
  Receipt Date: 20120830
  Transmission Date: 20130627
  Serious: Yes (Other)
  Sender: FDA-Public Use
  Company Number: US-ASTRAZENECA-2012SE60900

PATIENT
  Age: 58 Year
  Sex: Male

DRUGS (11)
  1. NEXIUM [Suspect]
     Route: 048
  2. ATENOLOL [Suspect]
     Route: 048
  3. LISINOPRIL [Suspect]
     Route: 048
  4. LANTUS [Concomitant]
     Dosage: 100 UNIT/ML, INJECT 18 UNIT 1 TIME PER DAY
     Route: 058
  5. CELEBREX [Concomitant]
     Dosage: 1 CAPSULE BY ORAL 1 TIMES PER DAY PRN
     Route: 048
  6. NOVOLIN R [Concomitant]
     Dosage: 100 UNIT/ML, INJECT 10 UNIT
     Route: 058
  7. CITALOPRAM [Concomitant]
     Route: 048
  8. LAMICTAL [Concomitant]
     Route: 048
  9. ASPIRIN [Concomitant]
     Route: 048
  10. JANUMET [Concomitant]
     Dosage: 50-50 MG, TWO TIMES A DAY
     Route: 048
  11. PROAIR HFA [Concomitant]
     Dosage: 90 MCG, 2 PUFFS, EVERY 4 TO 6 HOURS
     Route: 055

REACTIONS (10)
  - Cerebral artery occlusion [Unknown]
  - Cerebral infarction [Unknown]
  - Impaired gastric emptying [Unknown]
  - Subarachnoid haemorrhage [Unknown]
  - Alcohol abuse [Unknown]
  - Cerebellar ataxia [Unknown]
  - Mental status changes [Unknown]
  - Dizziness [Unknown]
  - Hyponatraemia [Unknown]
  - Major depression [Unknown]
